FAERS Safety Report 4527324-1 (Version None)
Quarter: 2004Q4

REPORT INFORMATION
  Report Type: 
  Country: None (occurrence: None)
  Receive Date: 20041214
  Receipt Date: 20041214
  Transmission Date: 20050328
  Serious: Yes (Hospitalization, Other)
  Sender: FDA-Public Use
  Company Number: None

PATIENT
  Age: 39 Year
  Sex: Female
  Weight: 108.8633 kg

DRUGS (4)
  1. VIOXX [Suspect]
     Indication: OSTEOARTHRITIS
     Dosage: ONCE DAILY ORAL
     Route: 048
     Dates: start: 20040608, end: 20040814
  2. VIOXX [Suspect]
     Indication: RHEUMATOID ARTHRITIS
     Dosage: ONCE DAILY ORAL
     Route: 048
     Dates: start: 20040608, end: 20040814
  3. BEXTRA [Suspect]
     Indication: OSTEOARTHRITIS
     Dosage: ONCE DAILY ORAL
     Route: 048
     Dates: start: 20030215, end: 20041119
  4. BEXTRA [Suspect]
     Indication: RHEUMATOID ARTHRITIS
     Dosage: ONCE DAILY ORAL
     Route: 048
     Dates: start: 20030215, end: 20041119

REACTIONS (3)
  - CHEST PAIN [None]
  - NAIL DISCOLOURATION [None]
  - RESPIRATORY DEPTH DECREASED [None]
